FAERS Safety Report 9227086 (Version 1)
Quarter: 2013Q2

REPORT INFORMATION
  Report Type: Spontaneous
  Country: GB (occurrence: GB)
  Receive Date: 20130412
  Receipt Date: 20130412
  Transmission Date: 20140414
  Serious: Yes (Other)
  Sender: FDA-Public Use
  Company Number: GB-ELI_LILLY_AND_COMPANY-GB201304000446

PATIENT
  Sex: Female

DRUGS (5)
  1. FLUOXETINE [Suspect]
     Indication: DEPRESSED MOOD
     Dosage: 20 MG, UNK
     Route: 064
     Dates: start: 20111114, end: 20111128
  2. CO-CODAMOL [Concomitant]
     Indication: ROAD TRAFFIC ACCIDENT
     Dosage: 1 DF, QID
     Route: 064
     Dates: start: 20111114, end: 20111130
  3. FOLIC ACID [Concomitant]
     Indication: PREGNANCY
     Dosage: 400 UG, UNK
     Route: 064
     Dates: start: 20110801
  4. M M RVAXPRO [Concomitant]
     Indication: IMMUNISATION
     Dosage: UNK, SINGLE
     Route: 064
     Dates: start: 20110707, end: 20110707
  5. PHENOXYMETHYLPENICILLIN [Concomitant]
     Indication: OROPHARYNGEAL PAIN
     Dosage: 500 MG, QID
     Route: 064
     Dates: start: 20120102, end: 20120109

REACTIONS (3)
  - Gastroenteritis viral [Unknown]
  - Large for dates baby [Unknown]
  - Foetal exposure during pregnancy [Recovered/Resolved]
